FAERS Safety Report 4536040-1 (Version None)
Quarter: 2004Q4

REPORT INFORMATION
  Report Type: 
  Country: None (occurrence: None)
  Receive Date: 20041214
  Receipt Date: 20041206
  Transmission Date: 20050328
  Serious: No
  Sender: FDA-Public Use
  Company Number: 2004UW20916

PATIENT
  Age: 48 Year
  Sex: Male
  Weight: 110.6777 kg

DRUGS (9)
  1. CRESTOR [Suspect]
     Indication: HYPERLIPIDAEMIA
     Dosage: 10 MG DAILY PO
     Route: 048
     Dates: end: 20040825
  2. PROPECIA [Concomitant]
  3. AMOXIL ^AYERST LAB^ [Concomitant]
  4. NAPROXEN [Concomitant]
  5. ASPIRIN [Concomitant]
  6. DELATESTRYL [Concomitant]
  7. VIAGRA [Concomitant]
  8. MULTIVITAMIN AND MINERAL SUPPLEMENT [Concomitant]
  9. PRO-METABOLIC SUPPLEMENTS [Concomitant]

REACTIONS (2)
  - BLOOD CREATINE PHOSPHOKINASE INCREASED [None]
  - HEPATIC ENZYME INCREASED [None]
